FAERS Safety Report 17243186 (Version 2)
Quarter: 2020Q4

REPORT INFORMATION
  Report Type: Spontaneous
  Country: PT (occurrence: PT)
  Receive Date: 20200107
  Receipt Date: 20201117
  Transmission Date: 20210113
  Serious: Yes (Other)
  Sender: FDA-Public Use
  Company Number: PT-IPSEN BIOPHARMACEUTICALS, INC.-2019-23819

PATIENT
  Age: 33 Year
  Sex: Female

DRUGS (1)
  1. DYSPORT [Suspect]
     Active Substance: ABOBOTULINUMTOXINA
     Indication: MUSCLE SPASTICITY
     Dosage: DOSE NOT REPORTED

REACTIONS (2)
  - Monoparesis [Recovered/Resolved]
  - Neuromuscular toxicity [Recovered/Resolved]
